FAERS Safety Report 11414722 (Version 3)
Quarter: 2015Q4

REPORT INFORMATION
  Report Type: Report from Study
  Country: CD (occurrence: CD)
  Receive Date: 20150825
  Receipt Date: 20151015
  Transmission Date: 20160304
  Serious: Yes (Other)
  Sender: FDA-Public Use
  Company Number: CD-ROCHE-1623296

PATIENT

DRUGS (1)
  1. DIAZEPAM. [Suspect]
     Active Substance: DIAZEPAM
     Indication: TETANUS
     Route: 065

REACTIONS (4)
  - Pulmonary tuberculosis [Unknown]
  - Increased bronchial secretion [Unknown]
  - Atelectasis [Unknown]
  - Areflexia [Unknown]
